FAERS Safety Report 7220572-1 (Version None)
Quarter: 2011Q1

REPORT INFORMATION
  Report Type: 
  Country: None (occurrence: None)
  Receive Date: 20110111
  Receipt Date: 20110105
  Transmission Date: 20110831
  Serious: Yes (Other)
  Sender: FDA-Public Use
  Company Number: CA-JNJFOC-20110101447

PATIENT
  Sex: Female
  Weight: 81.4 kg

DRUGS (6)
  1. NAPROXEN [Concomitant]
  2. METHOTREXATE [Concomitant]
  3. SYNTHROID [Concomitant]
  4. REMICADE [Suspect]
     Indication: RHEUMATOID ARTHRITIS
     Route: 042
  5. REMICADE [Suspect]
     Dosage: LAST DOSE 09-NOV-2010
     Route: 042
  6. EFFEXOR [Concomitant]

REACTIONS (1)
  - BREAST OPERATION [None]
